FAERS Safety Report 19955046 (Version 4)
Quarter: 2022Q1

REPORT INFORMATION
  Report Type: Report from Study
  Country: US (occurrence: US)
  Receive Date: 20211014
  Receipt Date: 20220209
  Transmission Date: 20220423
  Serious: Yes (Other)
  Sender: FDA-Public Use
  Company Number: US-PFIZER INC-2021903191

PATIENT
  Age: 66 Year
  Sex: Female

DRUGS (2)
  1. IBRANCE [Suspect]
     Active Substance: PALBOCICLIB
     Indication: Breast cancer female
     Dosage: 125 MG, CYCLIC (DAILY, 21 DAYS ON AND 7 DAYS OFF)
     Route: 048
     Dates: start: 20210709
  2. IBRANCE [Suspect]
     Active Substance: PALBOCICLIB
     Dosage: 125 MG, CYCLIC (21 DAY ON AND 7 DAYS OFF )
     Route: 048
     Dates: start: 20210812

REACTIONS (19)
  - Neuropathy peripheral [Unknown]
  - Pulmonary oedema [Unknown]
  - Fatigue [Not Recovered/Not Resolved]
  - Myalgia [Unknown]
  - Dysuria [Unknown]
  - White blood cell count decreased [Recovering/Resolving]
  - Oral pain [Unknown]
  - Skin disorder [Recovering/Resolving]
  - Pruritus [Recovering/Resolving]
  - Eye pain [Recovering/Resolving]
  - Upper-airway cough syndrome [Not Recovered/Not Resolved]
  - Dry mouth [Unknown]
  - Pain in extremity [Unknown]
  - Dyspnoea [Unknown]
  - Wheezing [Not Recovered/Not Resolved]
  - Tumour marker increased [Not Recovered/Not Resolved]
  - Mouth swelling [Unknown]
  - Lip swelling [Unknown]
  - Pain [Unknown]

NARRATIVE: CASE EVENT DATE: 20210101
